FAERS Safety Report 9415365 (Version 1)
Quarter: 2013Q3

REPORT INFORMATION
  Report Type: Report from Study
  Country: BR (occurrence: BR)
  Receive Date: 20130723
  Receipt Date: 20130723
  Transmission Date: 20140515
  Serious: Yes (Hospitalization)
  Sender: FDA-Public Use
  Company Number: PHHY2013BR077488

PATIENT
  Sex: Female
  Weight: 59 kg

DRUGS (4)
  1. AMLODIPINE BESYLATE [Suspect]
     Dates: start: 2011
  2. LOSARTAN POTASSIUM [Suspect]
     Dates: start: 2011
  3. HYDROCHLOROTHIAZIDE [Suspect]
     Dates: start: 2011, end: 20130702
  4. OMEGA 3 [Concomitant]

REACTIONS (4)
  - Cerebrovascular accident [Recovering/Resolving]
  - Hemiplegia [Recovering/Resolving]
  - Amnesia [Recovering/Resolving]
  - Gait disturbance [Recovering/Resolving]
